FAERS Safety Report 6824412-1 (Version None)
Quarter: 2010Q3

REPORT INFORMATION
  Report Type: 
  Country: None (occurrence: None)
  Receive Date: 20100708
  Receipt Date: 20061020
  Transmission Date: 20110219
  Serious: No
  Sender: FDA-Public Use
  Company Number: US-PFIZER INC-2006129849

PATIENT
  Sex: Male
  Weight: 73.94 kg

DRUGS (11)
  1. CHANTIX [Suspect]
     Indication: SMOKING CESSATION THERAPY
     Dates: start: 20060101
  2. LEXAPRO [Concomitant]
  3. ARICEPT [Concomitant]
  4. KEPPRA [Concomitant]
  5. DILANTIN [Concomitant]
  6. FOLIC ACID [Concomitant]
  7. LORTAB [Concomitant]
     Indication: BACK DISORDER
  8. SOMA [Concomitant]
  9. TOPROL-XL [Concomitant]
  10. PLAVIX [Concomitant]
  11. ARANESP [Concomitant]
     Indication: ANAEMIA

REACTIONS (2)
  - FEELING JITTERY [None]
  - NERVOUSNESS [None]
